FAERS Safety Report 7782990-2 (Version None)
Quarter: 2011Q3

REPORT INFORMATION
  Report Type: 
  Country: None (occurrence: None)
  Receive Date: 20110926
  Receipt Date: 20110916
  Transmission Date: 20111222
  Serious: Yes (Hospitalization, Other)
  Sender: FDA-Public Use
  Company Number: JPI-P-012955

PATIENT
  Age: 36 Year
  Sex: Female
  Weight: 74.8435 kg

DRUGS (10)
  1. DEXTROAMPHETAMINE AND AMPHETAMINE [Concomitant]
  2. VITAMIN D [Concomitant]
  3. ZOLPIDEM TARTRATE [Concomitant]
  4. VITAMIN B-12 [Concomitant]
  5. DULOXETINE HYDROCHLORIDE [Concomitant]
  6. OXYCODONE HCL [Concomitant]
  7. XYREM [Suspect]
     Indication: NARCOLEPSY
     Dosage: SEE IMAGE, ORAL
     Route: 048
     Dates: start: 20101219
  8. XYREM [Suspect]
     Indication: NARCOLEPSY
     Dosage: SEE IMAGE, ORAL
     Route: 048
     Dates: end: 20101216
  9. XYREM [Suspect]
     Indication: NARCOLEPSY
     Dosage: SEE IMAGE, ORAL
     Route: 048
     Dates: start: 20090804, end: 20090807
  10. XYREM [Suspect]

REACTIONS (10)
  - RECTAL PROLAPSE [None]
  - ENDOMETRIOSIS [None]
  - UTERINE PROLAPSE [None]
  - VAGINAL PROLAPSE [None]
  - INITIAL INSOMNIA [None]
  - ABNORMAL DREAMS [None]
  - POST PROCEDURAL INFECTION [None]
  - HANGOVER [None]
  - BLADDER PROLAPSE [None]
  - DIARRHOEA [None]
